FAERS Safety Report 22832726 (Version 2)
Quarter: 2024Q2

REPORT INFORMATION
  Report Type: Report from Study
  Country: US (occurrence: US)
  Receive Date: 20230817
  Receipt Date: 20240603
  Transmission Date: 20240716
  Serious: Yes (Other)
  Sender: FDA-Public Use
  Company Number: US-ARBOR PHARMACEUTICALS, LLC-US-2023ARB000326

PATIENT
  Age: 10 Year
  Sex: Female

DRUGS (6)
  1. TRIPTODUR [Suspect]
     Active Substance: TRIPTORELIN
     Indication: Product used for unknown indication
     Dosage: UNK, SINGLE
     Route: 030
  2. TRIPTODUR [Suspect]
     Active Substance: TRIPTORELIN
     Dosage: UNK, SINGLE
     Route: 030
     Dates: start: 20230628, end: 20230628
  3. TRIPTODUR [Suspect]
     Active Substance: TRIPTORELIN
     Dosage: UNK, SINGLE
     Route: 030
     Dates: start: 20240102, end: 20240102
  4. TRIPTODUR [Suspect]
     Active Substance: TRIPTORELIN
  5. TRIPTODUR [Suspect]
     Active Substance: TRIPTORELIN
  6. ZYRTEC [Concomitant]
     Active Substance: CETIRIZINE HYDROCHLORIDE
     Indication: Product used for unknown indication
     Dosage: UNK
     Route: 065

REACTIONS (8)
  - Epiphyses premature fusion [Unknown]
  - Dyschondrosteosis [Not Recovered/Not Resolved]
  - Breast disorder female [Recovering/Resolving]
  - Bilateral breast buds [Unknown]
  - Product administered at inappropriate site [Unknown]
  - Poor quality product administered [Unknown]
  - Wrong technique in product usage process [Unknown]
  - Liquid product physical issue [Unknown]

NARRATIVE: CASE EVENT DATE: 20230628
